FAERS Safety Report 12867238 (Version 1)
Quarter: 2016Q4

REPORT INFORMATION
  Report Type: Spontaneous
  Country: US (occurrence: US)
  Receive Date: 20161020
  Receipt Date: 20161020
  Transmission Date: 20170207
  Serious: No
  Sender: FDA-Public Use
  Company Number: US-JAZZ-2016-US-014449

PATIENT
  Age: 30 Year
  Sex: Female

DRUGS (11)
  1. MAGNESIUM OXIDE. [Concomitant]
     Active Substance: MAGNESIUM OXIDE
  2. METAMUCIL [Concomitant]
     Active Substance: PLANTAGO SEED
  3. NORETHINDRONE. [Concomitant]
     Active Substance: NORETHINDRONE
  4. MULTIVITAMIN [Concomitant]
     Active Substance: VITAMINS
  5. ZYRTEC [Concomitant]
     Active Substance: CETIRIZINE HYDROCHLORIDE
  6. TRAMADOL HCL [Concomitant]
     Active Substance: TRAMADOL HYDROCHLORIDE
  7. FISH OIL CONCENTRATE [Concomitant]
  8. PINDOLOL. [Concomitant]
     Active Substance: PINDOLOL
  9. XYREM [Suspect]
     Active Substance: SODIUM OXYBATE
     Indication: NARCOLEPSY
     Dosage: 2.25 G, BID
     Route: 048
     Dates: start: 20160801
  10. BIOTIN [Concomitant]
     Active Substance: BIOTIN
  11. DEXEDRINE [Concomitant]
     Active Substance: DEXTROAMPHETAMINE SULFATE

REACTIONS (12)
  - Dizziness [Unknown]
  - Activities of daily living impaired [Unknown]
  - Palpitations [Not Recovered/Not Resolved]
  - Somnolence [Unknown]
  - Blood pressure increased [Not Recovered/Not Resolved]
  - Unevaluable event [Not Recovered/Not Resolved]
  - Hypoaesthesia [Unknown]
  - Anxiety [Not Recovered/Not Resolved]
  - Chest discomfort [Not Recovered/Not Resolved]
  - Product preparation error [Unknown]
  - Feeling abnormal [Recovered/Resolved]
  - Headache [Not Recovered/Not Resolved]

NARRATIVE: CASE EVENT DATE: 2016
